FAERS Safety Report 12553561 (Version 1)
Quarter: 2016Q3

REPORT INFORMATION
  Report Type: Spontaneous
  Country: GB (occurrence: GB)
  Receive Date: 20160713
  Receipt Date: 20160713
  Transmission Date: 20161109
  Serious: Yes (Other)
  Sender: FDA-Public Use
  Company Number: GB-TEVA-674201ACC

PATIENT
  Age: 40 Year
  Sex: Female
  Weight: 51.71 kg

DRUGS (5)
  1. CINNARIZINE [Concomitant]
     Active Substance: CINNARIZINE
  2. PAROXETINE. [Suspect]
     Active Substance: PAROXETINE
     Indication: POST-TRAUMATIC STRESS DISORDER
     Dosage: RANGING BETWEEN 20MG-4 MG
     Route: 048
     Dates: start: 20130106
  3. DIAZEPAM. [Concomitant]
     Active Substance: DIAZEPAM
  4. ZOPICLONE [Concomitant]
     Active Substance: ZOPICLONE
  5. COCODAMOL [Concomitant]
     Active Substance: ACETAMINOPHEN\CODEINE PHOSPHATE

REACTIONS (12)
  - Paraesthesia [Recovered/Resolved with Sequelae]
  - Anticipatory anxiety [Recovering/Resolving]
  - Dizziness [Recovering/Resolving]
  - Withdrawal syndrome [Unknown]
  - Dyskinesia [Not Recovered/Not Resolved]
  - Palpitations [Recovering/Resolving]
  - Nightmare [Recovered/Resolved]
  - Vision blurred [Recovering/Resolving]
  - Depression [Recovering/Resolving]
  - Agoraphobia [Recovering/Resolving]
  - Diarrhoea [Recovering/Resolving]
  - Insomnia [Recovering/Resolving]

NARRATIVE: CASE EVENT DATE: 20160616
